FAERS Safety Report 4425534-5 (Version None)
Quarter: 2004Q3

REPORT INFORMATION
  Report Type: 
  Country: None (occurrence: None)
  Receive Date: 20040810
  Receipt Date: 20040728
  Transmission Date: 20050211
  Serious: Yes (Hospitalization, Other)
  Sender: FDA-Public Use
  Company Number: 2004051351

PATIENT
  Sex: Male

DRUGS (3)
  1. ZOLOFT [Suspect]
     Indication: ANGER
     Dosage: ORAL
     Route: 048
  2. VIAGRA [Suspect]
     Indication: SEXUAL DYSFUNCTION
     Dosage: ORAL
     Route: 048
  3. CELECOXIB (CELECOXIB) [Concomitant]

REACTIONS (12)
  - DEPRESSION [None]
  - DISORIENTATION [None]
  - DRUG INEFFECTIVE [None]
  - DRUG WITHDRAWAL SYNDROME [None]
  - FATIGUE [None]
  - IMPAIRED WORK ABILITY [None]
  - MALE SEXUAL DYSFUNCTION [None]
  - OVERDOSE [None]
  - PANIC ATTACK [None]
  - SUICIDAL IDEATION [None]
  - TRANSIENT ISCHAEMIC ATTACK [None]
  - WEIGHT INCREASED [None]
